FAERS Safety Report 17288370 (Version 1)
Quarter: 2020Q1

REPORT INFORMATION
  Report Type: Spontaneous
  Country: US (occurrence: US)
  Receive Date: 20191231
  Receipt Date: 20191231
  Transmission Date: 20200409
  Serious: No
  Sender: FDA-Public Use
  Company Number: None

PATIENT
  Sex: Male

DRUGS (1)
  1. MAVYRET [Suspect]
     Active Substance: GLECAPREVIR\PIBRENTASVIR
     Indication: ILL-DEFINED DISORDER
     Dosage: ?          OTHER DOSE:100MG/40MG;?
     Route: 048
     Dates: start: 20191122

REACTIONS (1)
  - Constipation [None]
